FAERS Safety Report 22043343 (Version 1)
Quarter: 2023Q1

REPORT INFORMATION
  Report Type: Spontaneous
  Country: GB (occurrence: None)
  Receive Date: 20230228
  Receipt Date: 20230228
  Transmission Date: 20230418
  Serious: Yes (Life-Threatening, Hospitalization)
  Sender: FDA-Public Use
  Company Number: None

PATIENT
  Age: 69 Year

DRUGS (6)
  1. ATORVASTATIN [Suspect]
     Active Substance: ATORVASTATIN
  2. WARFARIN [Suspect]
     Active Substance: WARFARIN
  3. BISOPROLOL [Concomitant]
     Active Substance: BISOPROLOL
  4. LEVETIRACETAM [Concomitant]
     Active Substance: LEVETIRACETAM
  5. LINAGLIPTIN [Concomitant]
     Active Substance: LINAGLIPTIN
  6. METFORMIN [Concomitant]
     Active Substance: METFORMIN HYDROCHLORIDE

REACTIONS (1)
  - Subdural haematoma [Not Recovered/Not Resolved]
